FAERS Safety Report 5368620-8 (Version None)
Quarter: 2007Q2

REPORT INFORMATION
  Report Type: 
  Country: None (occurrence: None)
  Receive Date: 20070620
  Receipt Date: 20070605
  Transmission Date: 20071010
  Serious: Yes (Other)
  Sender: FDA-Public Use
  Company Number: GXKR2007US04899

PATIENT
  Age: 92 Year
  Sex: Male

DRUGS (2)
  1. PREDNISONE [Suspect]
     Indication: TEMPORAL ARTERITIS
     Dosage: SEE IMAGE
     Route: 048
  2. METHOTREXATE [Concomitant]

REACTIONS (14)
  - DISEASE RECURRENCE [None]
  - HERPES ZOSTER [None]
  - HYPOAESTHESIA [None]
  - IMPAIRED HEALING [None]
  - LUNG NEOPLASM MALIGNANT [None]
  - MALIGNANT MELANOMA [None]
  - MUSCULAR WEAKNESS [None]
  - NEOPLASM SKIN [None]
  - NEUROPATHY PERIPHERAL [None]
  - OSTEOPOROSIS [None]
  - POST HERPETIC NEURALGIA [None]
  - SKIN ATROPHY [None]
  - SKIN ULCER [None]
  - SPINDLE CELL SARCOMA [None]
